FAERS Safety Report 24713383 (Version 2)
Quarter: 2024Q4

REPORT INFORMATION
  Report Type: Report from Study
  Country: DE (occurrence: DE)
  Receive Date: 20241209
  Receipt Date: 20241216
  Transmission Date: 20250115
  Serious: No
  Sender: CSL BEHRING
  Company Number: DE-BEH-2024186866

PATIENT
  Age: 74 Year
  Sex: Male
  Weight: 67 kg

DRUGS (8)
  1. PRIVIGEN [Suspect]
     Active Substance: HUMAN IMMUNOGLOBULIN G
     Dosage: 10 G
     Route: 042
     Dates: start: 20241017
  2. DARATUMUMAB [Concomitant]
     Active Substance: DARATUMUMAB
  3. AMLODIPINE\HYDROCHLOROTHIAZIDE\VALSARTAN [Concomitant]
     Active Substance: AMLODIPINE\HYDROCHLOROTHIAZIDE\VALSARTAN
  4. PRAVASTATIN [Concomitant]
     Active Substance: PRAVASTATIN
  5. DAPAGLIFLOZIN [Concomitant]
     Active Substance: DAPAGLIFLOZIN
  6. DEKRISTOL NEU [Concomitant]
  7. LENALIDOMIDE [Concomitant]
     Active Substance: LENALIDOMIDE
  8. ZOLEDRONIC ACID [Concomitant]
     Active Substance: ZOLEDRONIC ACID

REACTIONS (2)
  - Cardiogenic shock [Fatal]
  - Coronary artery disease [Fatal]
